FAERS Safety Report 7644351-6 (Version None)
Quarter: 2011Q3

REPORT INFORMATION
  Report Type: 
  Country: None (occurrence: None)
  Receive Date: 20110728
  Receipt Date: 20110728
  Transmission Date: 20111222
  Serious: Yes (Life-Threatening)
  Sender: FDA-Public Use
  Company Number: None

PATIENT
  Sex: Female
  Weight: 93.441 kg

DRUGS (2)
  1. LEVAQUIN [Suspect]
     Indication: ASTHMA
     Dosage: 500MG 1X DAY ORAL
     Route: 048
     Dates: start: 20110618, end: 20110630
  2. LEVAQUIN [Suspect]
     Indication: PNEUMONIA
     Dosage: 500MG 1X DAY ORAL
     Route: 048
     Dates: start: 20110618, end: 20110630

REACTIONS (5)
  - FALL [None]
  - DIARRHOEA [None]
  - ASTHENIA [None]
  - LOSS OF CONSCIOUSNESS [None]
  - HEART RATE IRREGULAR [None]
